FAERS Safety Report 4577034-X (Version None)
Quarter: 2005Q1

REPORT INFORMATION
  Report Type: 
  Country: None (occurrence: None)
  Receive Date: 20050208
  Receipt Date: 20050126
  Transmission Date: 20050727
  Serious: Yes (Death)
  Sender: FDA-Public Use
  Company Number: S05-USA-00477-01

PATIENT
  Age: 85 Year
  Sex: Male

DRUGS (1)
  1. NAEMENDA (MEMANTINE) [Suspect]
     Indication: DEMENTIA ALZHEIMER'S TYPE

REACTIONS (2)
  - ATRIOVENTRICULAR BLOCK SECOND DEGREE [None]
  - SYNCOPE [None]
